FAERS Safety Report 6707930-6 (Version None)
Quarter: 2010Q2

REPORT INFORMATION
  Report Type: 
  Country: None (occurrence: None)
  Receive Date: 20100429
  Receipt Date: 20060613
  Transmission Date: 20101027
  Serious: Yes (Other)
  Sender: FDA-Public Use
  Company Number: 2006EU001851

PATIENT
  Age: 49 Year
  Sex: Female

DRUGS (2)
  1. PROTOPIC [Suspect]
     Indication: DERMATITIS ATOPIC
     Dosage: DF, BID, TOPICAL
     Route: 061
     Dates: start: 20051101, end: 20060222
  2. ESTROGENS SOL/INJ [Concomitant]

REACTIONS (1)
  - HODGKIN'S DISEASE STAGE I [None]
